FAERS Safety Report 5868686-2 (Version None)
Quarter: 2008Q3

REPORT INFORMATION
  Report Type: 
  Country: None (occurrence: None)
  Receive Date: 20080903
  Receipt Date: 20080826
  Transmission Date: 20090109
  Serious: Yes (Hospitalization)
  Sender: FDA-Public Use
  Company Number: PHHY2008AU18120

PATIENT
  Sex: Male
  Weight: 88 kg

DRUGS (7)
  1. FAMVIR [Suspect]
     Indication: HERPES ZOSTER
     Dosage: UNK
     Route: 048
     Dates: start: 20080801, end: 20080807
  2. ASPIRIN [Concomitant]
     Dosage: 1 DF, QD
     Route: 048
  3. IMDUR [Concomitant]
     Dosage: 60 MG ONCE DAILY
     Route: 048
  4. METFORMIN HCL [Concomitant]
     Dosage: 1 G, BID
     Route: 048
  5. VASOCONTROL CD [Concomitant]
     Dosage: 240 MG/DAILY
     Route: 048
  6. OMEPRAZOLE [Concomitant]
     Dosage: 20 MG, QD
     Route: 048
  7. DIAMICRON MR [Concomitant]
     Dosage: 20
     Route: 048

REACTIONS (7)
  - ABNORMAL BEHAVIOUR [None]
  - AGGRESSION [None]
  - COGNITIVE DISORDER [None]
  - CONFUSIONAL STATE [None]
  - DEMENTIA [None]
  - DEPRESSION [None]
  - THINKING ABNORMAL [None]
